FAERS Safety Report 7655483-0 (Version None)
Quarter: 2011Q3

REPORT INFORMATION
  Report Type: 
  Country: None (occurrence: None)
  Receive Date: 20110804
  Receipt Date: 20110727
  Transmission Date: 20111222
  Serious: Yes (Other)
  Sender: FDA-Public Use
  Company Number: GB-ASTELLAS-2011EU004993

PATIENT
  Age: 21 Year
  Sex: Female

DRUGS (10)
  1. PREDNISOLONE [Concomitant]
     Indication: IMMUNOSUPPRESSION
     Dosage: UNK
     Route: 065
  2. CREON [Concomitant]
     Indication: RESPIRATORY TRACT INFECTION
     Dosage: UNK
     Route: 065
  3. MEROPENEM [Concomitant]
     Indication: RESPIRATORY TRACT INFECTION
     Dosage: UNK
     Route: 042
  4. TOBRAMYCIN [Concomitant]
     Dosage: UNK
     Route: 050
  5. TACROLIMUS [Suspect]
     Indication: IMMUNOSUPPRESSION
     Dosage: UNK
     Route: 065
  6. TOBRAMYCIN [Concomitant]
     Indication: RESPIRATORY TRACT INFECTION
     Dosage: UNK
     Route: 042
  7. COTRIM [Suspect]
     Indication: RESPIRATORY TRACT INFECTION
     Dosage: UNK
     Route: 065
  8. COLISTIN SULFATE [Concomitant]
     Indication: RESPIRATORY TRACT INFECTION
     Dosage: UNK
     Route: 042
  9. RANITIDINE [Concomitant]
     Dosage: UNK
     Route: 065
  10. DAILY VITAMINS [Concomitant]
     Indication: RESPIRATORY TRACT INFECTION
     Dosage: UNK
     Route: 065

REACTIONS (8)
  - OCULAR VASCULITIS [None]
  - VISUAL ACUITY REDUCED [None]
  - VENOUS OCCLUSION [None]
  - OFF LABEL USE [None]
  - MACULAR OEDEMA [None]
  - DIABETIC RETINOPATHY [None]
  - RETINAL ARTERY OCCLUSION [None]
  - VISION BLURRED [None]
